FAERS Safety Report 23409077 (Version 1)
Quarter: 2024Q1

REPORT INFORMATION
  Report Type: Spontaneous
  Country: NO (occurrence: NO)
  Receive Date: 20240117
  Receipt Date: 20240117
  Transmission Date: 20240409
  Serious: Yes (Other)
  Sender: FDA-Public Use
  Company Number: None

PATIENT
  Age: 72 Year
  Sex: Male

DRUGS (8)
  1. NEURONTIN [Interacting]
     Active Substance: GABAPENTIN
     Indication: Product used for unknown indication
     Dosage: 300 MG X1 FOR 2 DAYS, THEN 300 MG X2 FOR 2 DAYS, THEREAFTER 300 MG X3.
     Route: 065
     Dates: start: 20231218, end: 20231221
  2. OXYCONTIN [Interacting]
     Active Substance: OXYCODONE HYDROCHLORIDE
     Indication: Product used for unknown indication
     Dosage: 20 MILLIGRAM, BID
     Route: 065
     Dates: start: 20231215, end: 20231221
  3. POSACONAZOLE [Interacting]
     Active Substance: POSACONAZOLE
     Indication: Product used for unknown indication
     Dosage: UNK
     Route: 065
  4. BISOPROLOL [Concomitant]
     Active Substance: BISOPROLOL\BISOPROLOL FUMARATE
     Dosage: UNK
     Route: 065
  5. CYKLOKAPRON [Concomitant]
     Active Substance: TRANEXAMIC ACID
     Dosage: UNK
     Route: 065
  6. NYCOPLUS MULTI [Concomitant]
     Dosage: UNK
     Route: 065
  7. MEROPENEM [Concomitant]
     Active Substance: MEROPENEM
     Dosage: UNK
     Route: 065
  8. DEFERASIROX [Concomitant]
     Active Substance: DEFERASIROX
     Dosage: UNK
     Route: 065

REACTIONS (5)
  - Delirium [Unknown]
  - Hallucination [Unknown]
  - Drug interaction [Unknown]
  - Confusional state [Unknown]
  - Myoclonus [Unknown]

NARRATIVE: CASE EVENT DATE: 20231220
